FAERS Safety Report 11523904 (Version 1)
Quarter: 2015Q3

REPORT INFORMATION
  Report Type: Spontaneous
  Country: US (occurrence: US)
  Receive Date: 20150918
  Receipt Date: 20150918
  Transmission Date: 20151125
  Serious: Yes (Death, Other)
  Sender: FDA-Public Use
  Company Number: US-TAKEDA-TPA2011A07342

PATIENT

DRUGS (4)
  1. GLUCOPHAGE [Concomitant]
     Active Substance: METFORMIN HYDROCHLORIDE
     Dosage: UNK, 1 DAY IN 2005
     Dates: start: 2005
  2. LANTUS [Concomitant]
     Active Substance: INSULIN GLARGINE
     Dosage: 10 IU AT DAY 10, UNK
  3. METFORMIN [Concomitant]
     Active Substance: METFORMIN HYDROCHLORIDE
     Dosage: UNK, 1 DAY IN 2004
     Dates: start: 2004
  4. ACTOS [Suspect]
     Active Substance: PIOGLITAZONE HYDROCHLORIDE
     Indication: TYPE 2 DIABETES MELLITUS
     Dosage: 45MG AND 30MG AT VARIOUS TIMES, UNK
     Route: 048
     Dates: start: 20030623, end: 20071119

REACTIONS (2)
  - Death [Fatal]
  - Bladder cancer [Unknown]

NARRATIVE: CASE EVENT DATE: 20081110
